FAERS Safety Report 9749401 (Version 1)
Quarter: 2013Q4

REPORT INFORMATION
  Report Type: Spontaneous
  Country: US (occurrence: US)
  Receive Date: 20131212
  Receipt Date: 20131212
  Transmission Date: 20140711
  Serious: No
  Sender: FDA-Public Use
  Company Number: US-BIOGENIDEC-2013BI093067

PATIENT
  Age: 43 Year
  Sex: Female
  Weight: 60 kg

DRUGS (9)
  1. TECFIDERA [Suspect]
     Indication: PRODUCT USED FOR UNKNOWN INDICATION
     Route: 048
  2. SYNTHROID [Concomitant]
  3. SINGULAR [Concomitant]
  4. ADRENAL [Concomitant]
  5. MAGNESIUM [Concomitant]
  6. ENERGY CAP SUPPORT CALCIUM [Concomitant]
  7. BENADRYL [Concomitant]
  8. BABY ASPIRIN [Concomitant]
     Indication: FLUSHING
  9. CALCIUM 500 [Concomitant]

REACTIONS (11)
  - Throat irritation [Unknown]
  - Nasopharyngitis [Unknown]
  - Underdose [Unknown]
  - Abnormal faeces [Unknown]
  - Flushing [Unknown]
  - Rash [Unknown]
  - Erythema [Unknown]
  - Burning sensation [Unknown]
  - Pruritus [Unknown]
  - Abdominal pain upper [Unknown]
  - Diarrhoea [Unknown]
